FAERS Safety Report 9036839 (Version 1)
Quarter: 2013Q1

REPORT INFORMATION
  Report Type: Spontaneous
  Country: US (occurrence: None)
  Receive Date: 20130123
  Receipt Date: 20130123
  Transmission Date: 20140127
  Serious: Yes (Disabling, Other)
  Sender: FDA-Public Use
  Company Number: None

PATIENT
  Age: 23 Year
  Sex: Female
  Weight: 90.72 kg

DRUGS (1)
  1. UNSPECIFIED INGREDIENT [Suspect]

REACTIONS (7)
  - Femoral nerve palsy [None]
  - Muscle disorder [None]
  - Gait disturbance [None]
  - Balance disorder [None]
  - Arthropathy [None]
  - Fall [None]
  - Spinal compression fracture [None]
